FAERS Safety Report 4866963-5 (Version None)
Quarter: 2005Q4

REPORT INFORMATION
  Report Type: 
  Country: None (occurrence: None)
  Receive Date: 20051227
  Receipt Date: 20051005
  Transmission Date: 20060501
  Serious: Yes (Hospitalization)
  Sender: FDA-Public Use
  Company Number: US-MERCK-0510USA04715

PATIENT
  Age: 56 Year
  Sex: Male
  Weight: 105 kg

DRUGS (2)
  1. VIOXX [Suspect]
     Indication: ARTHRITIS
     Route: 048
     Dates: start: 20040101, end: 20040901
  2. LIPITOR [Concomitant]
     Route: 065

REACTIONS (5)
  - ACUTE MYOCARDIAL INFARCTION [None]
  - BRADYCARDIA [None]
  - CORONARY ARTERY OCCLUSION [None]
  - ESSENTIAL HYPERTENSION [None]
  - HYPOTENSION [None]
